FAERS Safety Report 16697319 (Version 1)
Quarter: 2019Q4

REPORT INFORMATION
  Report Type: Spontaneous
  Country: US (occurrence: US)
  Receive Date: 20190812
  Receipt Date: 20190812
  Transmission Date: 20200122
  Serious: Yes (Disabling)
  Sender: FDA-Public Use
  Company Number: None

PATIENT
  Age: 32 Year
  Sex: Female
  Weight: 66.6 kg

DRUGS (30)
  1. MARSHMALLOW ROOT [Concomitant]
  2. L-ARGINE [Concomitant]
  3. CAT^S CLAW [Concomitant]
     Active Substance: CAT^S CLAW
  4. SPIRONOLACTONE. [Concomitant]
     Active Substance: SPIRONOLACTONE
  5. TURMERIC CURCUMIN [Concomitant]
     Active Substance: HERBALS\TURMERIC
  6. ANDROGRAPHIS EXTRACT [Concomitant]
  7. OMEGA 3 FISH OIL [Concomitant]
     Active Substance: FISH OIL\OMEGA-3 FATTY ACIDS
  8. EPIDUO [Concomitant]
     Active Substance: ADAPALENE\BENZOYL PEROXIDE
  9. RED PANAX GINSENG EXTRACT [Concomitant]
  10. HAWTHORN BERRIES [Concomitant]
  11. ELEUTHERO ROOT [Concomitant]
  12. COMPLETE PROBIOTICS [Concomitant]
  13. LUPRON [Suspect]
     Active Substance: LEUPROLIDE ACETATE
     Dates: start: 20190418, end: 20190718
  14. GINGKO BILOBA [Concomitant]
     Active Substance: GINKGO
  15. ASHWAGANDHA [Concomitant]
     Active Substance: HERBALS
  16. RHODIOLA EXTRACT [Concomitant]
  17. CLINDAMYCIN. [Concomitant]
     Active Substance: CLINDAMYCIN
  18. KUDZU ROOT [Concomitant]
  19. EGCG [Concomitant]
     Active Substance: EPIGALLOCATECHIN GALLATE
  20. D3 10,000 + K [Concomitant]
  21. N-ACETYL CYSTEINE [Concomitant]
     Active Substance: ACETYLCYSTEINE
  22. CORDYCEPS MUSHROOM [Concomitant]
  23. CYCLOBENZAPRINE. [Concomitant]
     Active Substance: CYCLOBENZAPRINE
  24. JAPANESE KNOTWEED [Concomitant]
  25. MILK THISTLE [Concomitant]
     Active Substance: DIETARY SUPPLEMENT\HERBALS\MILK THISTLE
  26. VENALFAXINE [Concomitant]
  27. PROCHLORPERAZINE. [Concomitant]
     Active Substance: PROCHLORPERAZINE
  28. SUMATRIPTAN. [Concomitant]
     Active Substance: SUMATRIPTAN
  29. VITAMIN B [Concomitant]
     Active Substance: VITAMIN B
  30. EVENING PRIMROSE OIL [Concomitant]
     Active Substance: EVENING PRIMROSE OIL\HERBALS

REACTIONS (8)
  - Night sweats [None]
  - Hot flush [None]
  - Mood altered [None]
  - Asthenia [None]
  - Nausea [None]
  - Fatigue [None]
  - Joint noise [None]
  - Hyperhidrosis [None]

NARRATIVE: CASE EVENT DATE: 20190419
